FAERS Safety Report 12911578 (Version 1)
Quarter: 2016Q4

REPORT INFORMATION
  Report Type: Spontaneous
  Country: NL (occurrence: NL)
  Receive Date: 20161104
  Receipt Date: 20161104
  Transmission Date: 20170207
  Serious: Yes (Other)
  Sender: FDA-Public Use
  Company Number: NL-009507513-1610NLD014452

PATIENT
  Sex: Female

DRUGS (2)
  1. PROGESTERONE ACETATE [Concomitant]
     Indication: CONTRACEPTION
  2. IMPLANON [Suspect]
     Active Substance: ETONOGESTREL
     Dosage: 1 DF, UNK
     Route: 059
     Dates: start: 2012

REACTIONS (6)
  - Intentional self-injury [Unknown]
  - Product use issue [Unknown]
  - Device difficult to use [Not Recovered/Not Resolved]
  - Complication associated with device [Not Recovered/Not Resolved]
  - Incorrect drug administration duration [Unknown]
  - Product use issue [Unknown]

NARRATIVE: CASE EVENT DATE: 2012
